FAERS Safety Report 23075067 (Version 1)
Quarter: 2023Q4

REPORT INFORMATION
  Report Type: Spontaneous
  Country: CO (occurrence: CO)
  Receive Date: 20231017
  Receipt Date: 20231017
  Transmission Date: 20240110
  Serious: Yes (Death, Hospitalization, Other)
  Sender: FDA-Public Use
  Company Number: CO-AMGEN-COLSP2023180689

PATIENT

DRUGS (3)
  1. PROLIA [Suspect]
     Active Substance: DENOSUMAB
     Indication: Osteoporosis
     Dosage: UNK
     Route: 065
  2. TERIPARATIDE [Concomitant]
     Active Substance: TERIPARATIDE
     Route: 065
  3. ZOLEDRONIC ACID [Concomitant]
     Active Substance: ZOLEDRONIC ACID
     Route: 065

REACTIONS (15)
  - Death [Fatal]
  - Intensive care [Unknown]
  - Spinal fracture [Unknown]
  - Hip fracture [Unknown]
  - Radius fracture [Unknown]
  - Ulna fracture [Unknown]
  - Humerus fracture [Unknown]
  - Tibia fracture [Unknown]
  - Fibula fracture [Unknown]
  - Pelvic fracture [Unknown]
  - Syncope [Unknown]
  - Wrist fracture [Unknown]
  - Fracture [Unknown]
  - Pathological fracture [Unknown]
  - Fall [Unknown]
